FAERS Safety Report 5275194-9 (Version None)
Quarter: 2007Q1

REPORT INFORMATION
  Report Type: 
  Country: None (occurrence: None)
  Receive Date: 20061219
  Receipt Date: 20060928
  Transmission Date: 20070707
  Serious: Yes (Hospitalization)
  Sender: FDA-Public Use
  Company Number: US-JNJFOC-20061000225

PATIENT
  Age: 21 Year
  Sex: Female
  Weight: 80.7403 kg

DRUGS (5)
  1. ORTHO EVRA [Suspect]
     Indication: CONTRACEPTION
     Dosage: TRANSDERMAL
     Route: 062
     Dates: start: 20030319, end: 20050816
  2. ORTHO TRI-CYCLEN [Suspect]
     Indication: CONTRACEPTION
     Dosage: 1 IN 1 DAY, ORAL
     Route: 048
     Dates: start: 20050816, end: 20060429
  3. MOTRIN [Concomitant]
  4. NAPROSYN [Concomitant]
  5. TYLENOL [Concomitant]

REACTIONS (1)
  - DEEP VEIN THROMBOSIS [None]
